FAERS Safety Report 8293827-X (Version None)
Quarter: 2012Q2

REPORT INFORMATION
  Report Type: 
  Country: None (occurrence: None)
  Receive Date: 20120418
  Receipt Date: 20120410
  Transmission Date: 20120825
  Serious: Yes (Hospitalization)
  Sender: FDA-Public Use
  Company Number: US-BAYER-2011-015678

PATIENT
  Age: 23 Year
  Sex: Female
  Weight: 73 kg

DRUGS (8)
  1. ZITHROMAX [Concomitant]
  2. LIDODERM [Concomitant]
  3. ZOLOFT [Concomitant]
  4. LORTAB [Concomitant]
  5. YAZ [Suspect]
     Indication: PRODUCT USED FOR UNKNOWN INDICATION
     Dosage: UNK
     Route: 048
     Dates: start: 20080801, end: 20081016
  6. MULTI-VITAMINS [Concomitant]
  7. BACTRIM DS [Concomitant]
  8. ALBUTEROL [Concomitant]

REACTIONS (2)
  - PULMONARY EMBOLISM [None]
  - PAIN [None]
